FAERS Safety Report 20796295 (Version 1)
Quarter: 2022Q2

REPORT INFORMATION
  Report Type: Spontaneous
  Country: US (occurrence: None)
  Receive Date: 20220506
  Receipt Date: 20220506
  Transmission Date: 20220721
  Serious: No
  Sender: FDA-Public Use
  Company Number: None

PATIENT
  Age: 49 Year
  Sex: Female
  Weight: 73.03 kg

DRUGS (3)
  1. LEVETIRACETAM [Suspect]
     Active Substance: LEVETIRACETAM
     Indication: Epilepsy
     Dates: start: 20110402, end: 20110425
  2. KEPPRA XR [Concomitant]
     Active Substance: LEVETIRACETAM
     Dates: start: 20110402, end: 20110415
  3. Levitercitan XR 750mg [Concomitant]

REACTIONS (3)
  - Seizure [None]
  - Product substitution issue [None]
  - Therapeutic response changed [None]

NARRATIVE: CASE EVENT DATE: 20110402
